FAERS Safety Report 4359769-7 (Version None)
Quarter: 2004Q2

REPORT INFORMATION
  Report Type: 
  Country: None (occurrence: None)
  Receive Date: 20040518
  Receipt Date: 20030108
  Transmission Date: 20050107
  Serious: Yes (Death)
  Sender: FDA-Public Use
  Company Number: US-GLAXOSMITHKLINE-A0392205A

PATIENT
  Age: 33 Year
  Sex: Female
  Weight: 50 kg

DRUGS (5)
  1. PAXIL [Suspect]
     Indication: DEPRESSION
     Route: 048
     Dates: start: 20001218
  2. RENOVA [Concomitant]
  3. TRAZODONE HCL [Concomitant]
     Dosage: 50MG AT NIGHT
  4. XANAX [Concomitant]
     Dosage: .5MG AS REQUIRED
  5. CLARITIN [Concomitant]
     Indication: SINUS DISORDER

REACTIONS (24)
  - AFFECT LABILITY [None]
  - ANGER [None]
  - ANHEDONIA [None]
  - COMPLETED SUICIDE [None]
  - CONDITION AGGRAVATED [None]
  - DEPRESSION [None]
  - DIPLOPIA [None]
  - DIZZINESS [None]
  - EMOTIONAL DISTRESS [None]
  - FATIGUE [None]
  - FEAR [None]
  - GUN SHOT WOUND [None]
  - HEADACHE [None]
  - INSOMNIA [None]
  - INTENTIONAL OVERDOSE [None]
  - IRRITABILITY [None]
  - JUDGEMENT IMPAIRED [None]
  - NAUSEA [None]
  - PARANOIA [None]
  - SOCIAL AVOIDANT BEHAVIOUR [None]
  - SUICIDE ATTEMPT [None]
  - TRAUMATIC BRAIN INJURY [None]
  - TREMOR [None]
  - WEIGHT INCREASED [None]
